FAERS Safety Report 9871073 (Version 1)
Quarter: 2014Q1

REPORT INFORMATION
  Report Type: Spontaneous
  Country: US (occurrence: None)
  Receive Date: 20140204
  Receipt Date: 20140204
  Transmission Date: 20141002
  Serious: Yes (Death)
  Sender: FDA-Public Use
  Company Number: None

PATIENT
  Age: 58 Year
  Sex: Male
  Weight: 60.1 kg

DRUGS (6)
  1. AFATINIB [Suspect]
     Indication: SQUAMOUS CELL CARCINOMA
     Route: 048
     Dates: start: 20140114, end: 20140201
  2. AMLODIPINE [Concomitant]
  3. IBUPROFEN [Concomitant]
  4. OXYCONTIN [Concomitant]
  5. OXYCODONE [Concomitant]
  6. LIDOCAINE HCL [Concomitant]

REACTIONS (12)
  - Sepsis [None]
  - Asthenia [None]
  - Abdominal pain [None]
  - Dyspnoea [None]
  - Diarrhoea [None]
  - Pyrexia [None]
  - Haemoglobin decreased [None]
  - Platelet count decreased [None]
  - Blood sodium increased [None]
  - Blood urea increased [None]
  - Blood creatinine increased [None]
  - Blood glucose decreased [None]
